FAERS Safety Report 14492377 (Version 1)
Quarter: 2018Q1

REPORT INFORMATION
  Report Type: Spontaneous
  Country: KR (occurrence: KR)
  Receive Date: 20180206
  Receipt Date: 20180206
  Transmission Date: 20180509
  Serious: Yes (Hospitalization)
  Sender: FDA-Public Use
  Company Number: KR-ACTELION-A-CH2018-166728

PATIENT
  Age: 83 Year
  Sex: Female

DRUGS (1)
  1. OPSUMIT [Suspect]
     Active Substance: MACITENTAN
     Indication: PULMONARY ARTERIAL HYPERTENSION
     Dosage: UNK
     Route: 048
     Dates: start: 201801, end: 201801

REACTIONS (13)
  - Pruritus [Unknown]
  - Blood potassium increased [Unknown]
  - Urethritis [Unknown]
  - Headache [Unknown]
  - Jaundice [Unknown]
  - Delirium [Unknown]
  - Hypotension [Unknown]
  - Rash [Unknown]
  - Dizziness [Unknown]
  - Haemoglobin decreased [Unknown]
  - Oedema peripheral [Unknown]
  - Abdominal pain upper [Unknown]
  - Transfusion [Unknown]

NARRATIVE: CASE EVENT DATE: 201801
